FAERS Safety Report 8512762-2 (Version None)
Quarter: 2012Q3

REPORT INFORMATION
  Report Type: 
  Country: None (occurrence: None)
  Receive Date: 20120716
  Receipt Date: 20120712
  Transmission Date: 20120928
  Serious: Yes (Other)
  Sender: FDA-Public Use
  Company Number: US-TEVA-348145USA

PATIENT
  Sex: Female

DRUGS (1)
  1. AMLODIPINE BESYLATE AND BENAZEPRIL HCL [Suspect]

REACTIONS (4)
  - URTICARIA [None]
  - AGE-RELATED MACULAR DEGENERATION [None]
  - VISUAL IMPAIRMENT [None]
  - PRURITUS [None]
